FAERS Safety Report 13542531 (Version 1)
Quarter: 2017Q2

REPORT INFORMATION
  Report Type: Spontaneous
  Country: US (occurrence: US)
  Receive Date: 20170512
  Receipt Date: 20170512
  Transmission Date: 20170830
  Serious: Yes (Other)
  Sender: FDA-Public Use
  Company Number: US-ROCHE-712972

PATIENT
  Sex: Male

DRUGS (4)
  1. AVASTIN [Suspect]
     Active Substance: BEVACIZUMAB
     Indication: RECTAL CANCER
     Dosage: 12 TREATMENTS FOR ABOUT 6 MONTHS, LAST DOSE PRIOR TO SAE: FEBRUARY 2010
     Route: 065
  2. OXALIPLATIN. [Concomitant]
     Active Substance: OXALIPLATIN
     Dosage: 12 TREATMENTS FOR ABOUT 6 MONTHS, LAST DOSE PRIOR TO SAE: FEBRUARY 2010
     Route: 065
  3. FLUOROURACIL. [Concomitant]
     Active Substance: FLUOROURACIL
     Dosage: 12 TREATMENTS FOR ABOUT 6 MONTHS, LAST DOSE PRIOR TO SAE: FEBRUARY 2010
     Route: 065
  4. FOLINIC ACID [Concomitant]
     Active Substance: LEUCOVORIN
     Dosage: 12 TREATMENTS FOR ABOUT 6 MONTHS, LAST DOSE PRIOR TO SAE: FEBRUARY 2010
     Route: 065

REACTIONS (1)
  - Blood pressure increased [Unknown]
